FAERS Safety Report 9291590 (Version 4)
Quarter: 2013Q4

REPORT INFORMATION
  Report Type: Report from Study
  Country: GB (occurrence: GB)
  Receive Date: 20130515
  Receipt Date: 20131107
  Transmission Date: 20140711
  Serious: Yes (Hospitalization)
  Sender: FDA-Public Use
  Company Number: GB-GLAXOSMITHKLINE-B0891430A

PATIENT
  Sex: Male
  Weight: 81 kg

DRUGS (5)
  1. PAZOPANIB [Suspect]
     Indication: NEUROENDOCRINE TUMOUR
     Dosage: 800MG PER DAY
     Route: 048
     Dates: start: 20130423, end: 20130430
  2. ATENOLOL [Concomitant]
     Dosage: 50MG PER DAY
  3. RAMIPRIL [Concomitant]
     Dosage: 5MG PER DAY
  4. WARFARIN [Concomitant]
  5. CLEXANE [Concomitant]

REACTIONS (1)
  - Cardiac disorder [Recovered/Resolved]
